FAERS Safety Report 14660286 (Version 1)
Quarter: 2018Q1

REPORT INFORMATION
  Report Type: Spontaneous
  Country: US (occurrence: US)
  Receive Date: 20180317
  Receipt Date: 20180317
  Transmission Date: 20180509
  Serious: Yes (Other)
  Sender: FDA-Public Use
  Company Number: None

PATIENT
  Age: 57 Year
  Sex: Female
  Weight: 67.5 kg

DRUGS (1)
  1. SUBOXONE [Suspect]
     Active Substance: BUPRENORPHINE HYDROCHLORIDE\NALOXONE HYDROCHLORIDE
     Indication: DRUG DEPENDENCE
     Route: 060
     Dates: start: 20171201, end: 20180309

REACTIONS (10)
  - Pruritus [None]
  - Swollen tongue [None]
  - Swelling face [None]
  - Erythema [None]
  - Throat irritation [None]
  - Erythema of eyelid [None]
  - Pharyngeal oedema [None]
  - Tongue erythema [None]
  - Tongue pruritus [None]
  - Hypersensitivity [None]

NARRATIVE: CASE EVENT DATE: 20180309
